FAERS Safety Report 23746549 (Version 1)
Quarter: 2024Q2

REPORT INFORMATION
  Report Type: Spontaneous
  Country: BG (occurrence: BG)
  Receive Date: 20240416
  Receipt Date: 20240416
  Transmission Date: 20240717
  Serious: Yes (Other)
  Sender: FDA-Public Use
  Company Number: BG-ROCHE-2982198

PATIENT
  Age: 65 Year
  Sex: Female
  Weight: 64 kg

DRUGS (17)
  1. ZOLEDRONIC ACID [Suspect]
     Active Substance: ZOLEDRONIC ACID
     Indication: Product used for unknown indication
     Dosage: 4 MILLIGRAM, Q28D
     Route: 042
     Dates: start: 20200227, end: 20201221
  2. TAXOTERE [Suspect]
     Active Substance: DOCETAXEL
     Indication: HER2 positive breast cancer
     Dosage: 75 MILLIGRAM/SQ. METER, Q3W
     Route: 042
     Dates: start: 20180720, end: 20190104
  3. TAXOTERE [Suspect]
     Active Substance: DOCETAXEL
     Dosage: 80 MILLIGRAM, Q28D
     Route: 042
     Dates: start: 20190104, end: 20190423
  4. HERCEPTIN [Suspect]
     Active Substance: TRASTUZUMAB
     Indication: HER2 positive breast cancer
     Dosage: 450 MILLIGRAM, Q3W
     Route: 042
     Dates: start: 20180817, end: 20190423
  5. HERCEPTIN [Suspect]
     Active Substance: TRASTUZUMAB
     Dosage: 300 MILLIGRAM, Q3W
     Route: 042
     Dates: start: 20190605, end: 20191210
  6. HERCEPTIN [Suspect]
     Active Substance: TRASTUZUMAB
     Dosage: 300 MILLIGRAM, Q3W
     Route: 042
     Dates: start: 20200602, end: 20230316
  7. NAVELBINE [Suspect]
     Active Substance: VINORELBINE TARTRATE
     Indication: HER2 positive breast cancer
     Dosage: 40 MILLIGRAM
     Route: 042
     Dates: start: 20190605, end: 20191217
  8. TAXOL [Suspect]
     Active Substance: PACLITAXEL
     Indication: HER2 positive breast cancer
     Dosage: 278 MILLILITER, Q28D
     Route: 042
     Dates: start: 20210205, end: 20210927
  9. KADCYLA [Suspect]
     Active Substance: ADO-TRASTUZUMAB EMTANSINE
     Indication: HER2 positive breast cancer
     Dosage: 160 MILLIGRAM, Q3W
     Route: 042
     Dates: start: 20200206, end: 20200504
  10. KADCYLA [Suspect]
     Active Substance: ADO-TRASTUZUMAB EMTANSINE
     Dosage: 100 MILLIGRAM, Q3W
     Route: 042
     Dates: start: 20230925, end: 20231030
  11. CAPECITABINE [Suspect]
     Active Substance: CAPECITABINE
     Indication: HER2 positive breast cancer
     Dosage: 3500 MILLIGRAM
     Route: 048
     Dates: start: 20200602, end: 20210123
  12. CAPECITABINE [Suspect]
     Active Substance: CAPECITABINE
     Dosage: 3000 MILLIGRAM
     Route: 048
     Dates: start: 20230425, end: 20230807
  13. KETOTIFEN [Concomitant]
     Active Substance: KETOTIFEN
     Indication: Cough
     Dosage: 1 MILLIGRAM, QD
     Route: 048
     Dates: start: 20200521
  14. XGEVA [Concomitant]
     Active Substance: DENOSUMAB
     Indication: Metastases to bone
     Dosage: 1200 MILLIGRAM, MONTHLY
     Route: 058
     Dates: start: 20220426, end: 20231113
  15. ZOFRAN [Concomitant]
     Active Substance: ONDANSETRON HYDROCHLORIDE
     Indication: Vomiting
     Dosage: 8 MILLIGRAM, QD
     Route: 048
     Dates: start: 20181113, end: 20181117
  16. ALBUTEROL [Concomitant]
     Active Substance: ALBUTEROL
     Indication: Cough
     Dosage: 2 MILLIGRAM, QD
     Route: 048
     Dates: start: 20200521
  17. ZOMETA [Concomitant]
     Active Substance: ZOLEDRONIC ACID
     Indication: Metastases to bone
     Dosage: 4 MILLIGRAM, MONTHLY
     Route: 042
     Dates: start: 20200227, end: 20220326

REACTIONS (2)
  - Metastases to lung [Unknown]
  - COVID-19 [Recovered/Resolved]

NARRATIVE: CASE EVENT DATE: 20211007
